FAERS Safety Report 8153251-7 (Version None)
Quarter: 2012Q1

REPORT INFORMATION
  Report Type: 
  Country: None (occurrence: None)
  Receive Date: 20120221
  Receipt Date: 20120214
  Transmission Date: 20120608
  Serious: Yes (Other)
  Sender: FDA-Public Use
  Company Number: CA-B.I. PHARMACEUTICALS,INC./RIDGEFIELD-2012-CN-00330CN

PATIENT
  Age: 80 Year
  Sex: Male
  Weight: 77 kg

DRUGS (5)
  1. PRADAXA [Suspect]
     Dosage: 220 MG
     Route: 048
  2. ATORVASTATIN CALCIUM [Concomitant]
     Route: 065
  3. PERINDOPRIL ERBUMINE [Concomitant]
     Route: 065
  4. METOPROLOL TARTRATE [Concomitant]
     Route: 065
  5. OMEPRAZOLE [Concomitant]
     Route: 065

REACTIONS (3)
  - FLATULENCE [None]
  - DIARRHOEA [None]
  - FREQUENT BOWEL MOVEMENTS [None]
